FAERS Safety Report 7293861-2 (Version None)
Quarter: 2011Q1

REPORT INFORMATION
  Report Type: 
  Country: None (occurrence: None)
  Receive Date: 20110203
  Receipt Date: 20110124
  Transmission Date: 20110831
  Serious: Yes (Death)
  Sender: FDA-Public Use
  Company Number: 023014

PATIENT
  Sex: Male
  Weight: 126.8 kg

DRUGS (9)
  1. LACOSAMIDE [Suspect]
     Indication: EPILEPSY
     Dosage: (400 MG BID ORAL)
     Route: 048
     Dates: start: 20060523, end: 20101124
  2. NASONEX [Concomitant]
  3. ZONEGRAN [Concomitant]
  4. DILANTIN [Concomitant]
  5. COMBIVENT [Concomitant]
  6. LORAZEPAM [Concomitant]
  7. LISINOPRIL AND HYDROCHLOROTHIAZIDE [Concomitant]
  8. PROZAC /00724401/ [Concomitant]
  9. PHENYTEK /00017401/ [Concomitant]

REACTIONS (6)
  - CATATONIA [None]
  - DRUG SCREEN POSITIVE [None]
  - HYPERTENSION [None]
  - POST-TRAUMATIC EPILEPSY [None]
  - CARDIAC HYPERTROPHY [None]
  - BRUXISM [None]
